FAERS Safety Report 4778706-4 (Version None)
Quarter: 2005Q3

REPORT INFORMATION
  Report Type: 
  Country: None (occurrence: None)
  Receive Date: 20050926
  Receipt Date: 20050914
  Transmission Date: 20060218
  Serious: Yes (Other)
  Sender: FDA-Public Use
  Company Number: 200512719JP

PATIENT
  Age: 84 Year
  Sex: Male

DRUGS (3)
  1. GLIBENCLAMIDE [Suspect]
  2. VOGLIBOSE [Concomitant]
  3. PIOGLITAZONE HCL [Concomitant]

REACTIONS (2)
  - DEPRESSED LEVEL OF CONSCIOUSNESS [None]
  - HYPOGLYCAEMIA [None]
